FAERS Safety Report 5122920-5 (Version None)
Quarter: 2006Q4

REPORT INFORMATION
  Report Type: 
  Country: None (occurrence: None)
  Receive Date: 20061009
  Receipt Date: 20060815
  Transmission Date: 20070319
  Serious: Yes (Life-Threatening, Other)
  Sender: FDA-Public Use
  Company Number: 2006UW17708

PATIENT
  Age: 702 Month
  Sex: Male
  Weight: 84.1 kg

DRUGS (5)
  1. ZOLADEX [Suspect]
     Indication: PROSTATE CANCER
     Route: 058
     Dates: start: 20050131, end: 20060501
  2. LANTUS [Concomitant]
     Indication: DIABETES MELLITUS
     Route: 058
     Dates: start: 20010101
  3. HUMALOG [Concomitant]
     Indication: DIABETES MELLITUS
     Dosage: 5-10 U
     Route: 058
     Dates: start: 19960101
  4. LIPITOR [Concomitant]
     Indication: HYPERCHOLESTEROLAEMIA
     Route: 048
     Dates: start: 20030101, end: 20060701
  5. FLOMAX [Concomitant]
     Indication: PROSTATISM
     Route: 048
     Dates: start: 20041201, end: 20060701

REACTIONS (1)
  - ANGIONEUROTIC OEDEMA [None]
